FAERS Safety Report 4586569-5 (Version None)
Quarter: 2005Q1

REPORT INFORMATION
  Report Type: 
  Country: None (occurrence: None)
  Receive Date: 20050218
  Receipt Date: 20040412
  Transmission Date: 20050727
  Serious: No
  Sender: FDA-Public Use
  Company Number: US-BRISTOL-MYERS SQUIBB COMPANY-12558748

PATIENT
  Age: 56 Year
  Sex: Female
  Weight: 137 kg

DRUGS (5)
  1. TAXOL [Suspect]
     Indication: BREAST CANCER
     Route: 042
     Dates: start: 20040412, end: 20040412
  2. PEPCID [Concomitant]
     Indication: PREMEDICATION
  3. DIPHENHYDRAMINE HCL [Concomitant]
     Indication: PREMEDICATION
  4. ZOFRAN [Concomitant]
     Indication: PREMEDICATION
  5. DECADRON [Concomitant]
     Indication: PREMEDICATION

REACTIONS (1)
  - ACCIDENTAL EXPOSURE [None]
